FAERS Safety Report 24282128 (Version 1)
Quarter: 2024Q3

REPORT INFORMATION
  Report Type: Spontaneous
  Country: US (occurrence: None)
  Receive Date: 20240904
  Receipt Date: 20240904
  Transmission Date: 20241016
  Serious: No
  Sender: Public
  Company Number: None

PATIENT
  Age: 68 Year
  Sex: Female
  Weight: 80.1 kg

DRUGS (7)
  1. QULIPTA [Suspect]
     Active Substance: ATOGEPANT
     Indication: Migraine
     Dosage: 1 TABLET ORAL
     Route: 048
     Dates: start: 20240816
  2. PRAVASTATIN [Concomitant]
     Active Substance: PRAVASTATIN
  3. ASPIRIN [Concomitant]
     Active Substance: ASPIRIN
  4. Prilosic [Concomitant]
  5. AIMOVIG [Concomitant]
     Active Substance: ERENUMAB-AOOE
  6. XOPENEX [Concomitant]
     Active Substance: LEVALBUTEROL HYDROCHLORIDE
  7. MAGNESIUM [Concomitant]
     Active Substance: MAGNESIUM

REACTIONS (5)
  - Dizziness [None]
  - Dizziness [None]
  - Tinnitus [None]
  - Ear discomfort [None]
  - Fatigue [None]

NARRATIVE: CASE EVENT DATE: 20240816
